FAERS Safety Report 19087151 (Version 24)
Quarter: 2022Q1

REPORT INFORMATION
  Report Type: Report from Study
  Country: CA (occurrence: None)
  Receive Date: 20210402
  Receipt Date: 20220118
  Transmission Date: 20220423
  Serious: Yes (Hospitalization)
  Sender: FDA-Public Use
  Company Number: CA-EISAI MEDICAL RESEARCH-EC-2021-090568

PATIENT
  Age: 64 Year
  Sex: Male
  Weight: 59.1 kg

DRUGS (14)
  1. LENVATINIB [Suspect]
     Active Substance: LENVATINIB
     Indication: Squamous cell carcinoma of head and neck
     Route: 048
     Dates: start: 20201117, end: 20210227
  2. PEMBROLIZUMAB [Suspect]
     Active Substance: PEMBROLIZUMAB
     Indication: Squamous cell carcinoma of head and neck
     Route: 041
     Dates: start: 20201117, end: 20210120
  3. PEMBROLIZUMAB [Suspect]
     Active Substance: PEMBROLIZUMAB
     Route: 041
     Dates: start: 20210210, end: 20210210
  4. AMLODIPINE [Concomitant]
     Active Substance: AMLODIPINE BESYLATE
     Dates: start: 201701
  5. ROSUVASTATIN [Concomitant]
     Active Substance: ROSUVASTATIN
     Dates: start: 201701
  6. DEXILANT [Concomitant]
     Active Substance: DEXLANSOPRAZOLE
     Dates: start: 202004
  7. NABILONE [Concomitant]
     Active Substance: NABILONE
     Dates: start: 20201120
  8. ADVIL [Concomitant]
     Active Substance: IBUPROFEN
     Dates: start: 20201207
  9. NYSTATIN [Concomitant]
     Active Substance: NYSTATIN
     Dates: start: 20201214
  10. SYNTHROID [Concomitant]
     Active Substance: LEVOTHYROXINE SODIUM
     Dates: start: 20210303
  11. PROCHLORPERAZINE [Concomitant]
     Active Substance: PROCHLORPERAZINE
     Dates: start: 20201208, end: 20210330
  12. DIPHENHYDRAMINE;HYDROCORTISONE;NYSTATIN [Concomitant]
     Dates: start: 20210302
  13. ENSURE HIGH PROTEIN [Concomitant]
     Route: 048
     Dates: start: 20210310, end: 20210520
  14. RESOURCE 2.0 [Concomitant]
     Route: 048
     Dates: start: 20210310, end: 20210520

REACTIONS (1)
  - Empyema [Not Recovered/Not Resolved]

NARRATIVE: CASE EVENT DATE: 20210325
